FAERS Safety Report 6897270-7 (Version None)
Quarter: 2010Q3

REPORT INFORMATION
  Report Type: 
  Country: None (occurrence: None)
  Receive Date: 20100802
  Receipt Date: 20070428
  Transmission Date: 20110219
  Serious: Yes (Other)
  Sender: FDA-Public Use
  Company Number: US-PFIZER INC-2007034881

PATIENT
  Sex: Female
  Weight: 50.909 kg

DRUGS (4)
  1. LYRICA [Suspect]
     Indication: NEUROPATHY PERIPHERAL
     Dates: start: 20070419
  2. LYRICA [Suspect]
     Indication: POST-TRAUMATIC PAIN
  3. LYRICA [Suspect]
     Indication: PAIN
  4. ZOLOFT [Concomitant]

REACTIONS (1)
  - IMPAIRED DRIVING ABILITY [None]
